FAERS Safety Report 5948027-2 (Version None)
Quarter: 2008Q4

REPORT INFORMATION
  Report Type: 
  Country: None (occurrence: None)
  Receive Date: 20081110
  Receipt Date: 20081110
  Transmission Date: 20090506
  Serious: Yes (Hospitalization)
  Sender: FDA-Public Use
  Company Number: None

PATIENT
  Sex: Female
  Weight: 58.5 kg

DRUGS (3)
  1. ETOPOSIDE [Suspect]
     Dosage: 264 MG
  2. GEMCITABINE HCL [Suspect]
     Dosage: 1650 MG
  3. METHYLPREDNISOLONE 16MG TAB [Suspect]
     Dosage: 1000 MG

REACTIONS (2)
  - ACUTE MYOCARDIAL INFARCTION [None]
  - CEREBRAL HAEMORRHAGE [None]
